FAERS Safety Report 9991571 (Version 1)
Quarter: 2014Q1

REPORT INFORMATION
  Report Type: Spontaneous
  Country: JP (occurrence: JP)
  Receive Date: 20140310
  Receipt Date: 20140310
  Transmission Date: 20141002
  Serious: Yes (Hospitalization)
  Sender: FDA-Public Use
  Company Number: JP-B.I. PHARMACEUTICALS,INC./RIDGEFIELD-2014-BI-10182NB

PATIENT
  Age: 60 Year
  Sex: Female

DRUGS (8)
  1. MICARDIS [Suspect]
     Indication: PRODUCT USED FOR UNKNOWN INDICATION
     Dosage: 40 MG
     Route: 065
  2. ADRENOCORTICAL STEROIDS [Concomitant]
     Route: 065
  3. AGENTS FOR PEPTIC ULCER [Concomitant]
     Route: 065
  4. MAGNESIUM SALTS PREPARATIONS [Concomitant]
     Route: 065
  5. ANTIHISTAMINES [Concomitant]
     Route: 065
  6. MELATONIN [Concomitant]
     Route: 065
  7. MELATONIN [Concomitant]
     Dosage: NR
     Route: 065
  8. GLUCOSE POLYMER HYDROGENATED [Concomitant]
     Route: 065

REACTIONS (2)
  - Convulsion [Unknown]
  - Myalgia [Unknown]
